FAERS Safety Report 6324825-0 (Version None)
Quarter: 2009Q3

REPORT INFORMATION
  Report Type: 
  Country: None (occurrence: None)
  Receive Date: 20090818
  Receipt Date: 20090514
  Transmission Date: 20100115
  Serious: No
  Sender: FDA-Public Use
  Company Number: WAES 0905USA01900

PATIENT
  Age: 73 Year
  Sex: Female

DRUGS (5)
  1. JANUVIA [Suspect]
     Indication: DIABETES MELLITUS
     Dosage: 100 MG/DAILY/PO
     Route: 048
     Dates: start: 20090414
  2. ALTACE [Concomitant]
  3. AMARYL [Concomitant]
  4. SYNTHROID [Concomitant]
  5. TOPROL-XL [Concomitant]

REACTIONS (4)
  - BLOOD GLUCOSE INCREASED [None]
  - HEADACHE [None]
  - NASAL CONGESTION [None]
  - RHINORRHOEA [None]
